FAERS Safety Report 8447120-2 (Version None)
Quarter: 2012Q2

REPORT INFORMATION
  Report Type: 
  Country: None (occurrence: None)
  Receive Date: 20120619
  Receipt Date: 20120613
  Transmission Date: 20120825
  Serious: No
  Sender: FDA-Public Use
  Company Number: US-PFIZER INC-2012109171

PATIENT
  Sex: Male
  Weight: 81.6 kg

DRUGS (11)
  1. CARVEDILOL [Concomitant]
     Indication: HYPERTENSION
     Dosage: 12.5 MG, 2X/DAY
     Dates: start: 19990101
  2. LISINOPRIL [Concomitant]
     Indication: CARDIAC DISORDER
  3. ATORVASTATIN [Concomitant]
     Indication: BLOOD CHOLESTEROL INCREASED
     Dosage: 40 MG, DAILY
     Dates: start: 20120401
  4. ACETYLSALICYLIC ACID [Concomitant]
     Indication: CARDIAC DISORDER
  5. FELODIPINE [Concomitant]
     Indication: HYPERTENSION
     Dosage: 10 MG, DAILY
     Dates: start: 19990101
  6. CARVEDILOL [Concomitant]
     Indication: CARDIAC DISORDER
  7. LISINOPRIL [Concomitant]
     Indication: HYPERTENSION
     Dosage: 20 MG, DAILY
     Dates: start: 19990101
  8. ACETYLSALICYLIC ACID [Concomitant]
     Indication: HYPERTENSION
     Dosage: 81 MG, DAILY
     Dates: start: 19990101
  9. SIMVASTATIN [Concomitant]
     Indication: BLOOD CHOLESTEROL INCREASED
     Dosage: 80 MG, DAILY
     Dates: end: 20120401
  10. SUTENT [Suspect]
     Indication: RENAL CANCER
     Dosage: 37.5 MG(25MG AND 12.5MG), 1X/DAY
     Route: 048
     Dates: start: 20120101
  11. FELODIPINE [Concomitant]
     Indication: CARDIAC DISORDER

REACTIONS (3)
  - ABDOMINAL DISCOMFORT [None]
  - ABDOMINAL PAIN UPPER [None]
  - DIARRHOEA [None]
